FAERS Safety Report 24367576 (Version 3)
Quarter: 2024Q4

REPORT INFORMATION
  Report Type: Spontaneous
  Country: JP (occurrence: JP)
  Receive Date: 20240926
  Receipt Date: 20241221
  Transmission Date: 20250115
  Serious: Yes (Life-Threatening, Hospitalization, Other)
  Sender: TEVA
  Company Number: JP-TEVA-VS-3245566

PATIENT
  Age: 83 Year
  Sex: Female

DRUGS (17)
  1. AZILECT [Suspect]
     Active Substance: RASAGILINE MESYLATE
     Indication: Parkinson^s disease
     Route: 048
     Dates: start: 20230626, end: 20230806
  2. AZILECT [Suspect]
     Active Substance: RASAGILINE MESYLATE
     Indication: Parkinson^s disease
     Route: 048
     Dates: start: 20230807, end: 20230928
  3. AZILECT [Suspect]
     Active Substance: RASAGILINE MESYLATE
     Indication: Parkinson^s disease
     Route: 048
     Dates: start: 20231006, end: 20240711
  4. AZILECT [Suspect]
     Active Substance: RASAGILINE MESYLATE
     Indication: Parkinson^s disease
     Route: 048
     Dates: start: 20240712, end: 20240723
  5. AZILECT [Suspect]
     Active Substance: RASAGILINE MESYLATE
     Indication: Parkinson^s disease
     Route: 048
     Dates: start: 20240724, end: 20240826
  6. MOSAPRIDE CITRATE [Concomitant]
     Active Substance: MOSAPRIDE CITRATE
     Indication: Decreased appetite
     Dates: start: 20230922, end: 20230928
  7. VIBEGRON [Concomitant]
     Active Substance: VIBEGRON
     Indication: Nocturia
     Dates: start: 20230926, end: 20231207
  8. RISPERIDONE [Concomitant]
     Active Substance: RISPERIDONE
     Indication: Insomnia
     Dates: start: 20230926, end: 20231026
  9. CARBIDOPA\LEVODOPA [Concomitant]
     Active Substance: CARBIDOPA\LEVODOPA
     Indication: Product used for unknown indication
     Dates: end: 20230828
  10. ESOMEPRAZOLE MAGNESIUM [Concomitant]
     Active Substance: ESOMEPRAZOLE MAGNESIUM
     Indication: Product used for unknown indication
     Dates: start: 20230410, end: 20231206
  11. ELDECALCITOL [Concomitant]
     Active Substance: ELDECALCITOL
     Indication: Product used for unknown indication
     Dates: start: 20230410, end: 20230914
  12. ELOBIXIBAT [Concomitant]
     Active Substance: ELOBIXIBAT
     Indication: Product used for unknown indication
     Dates: start: 20230410, end: 20230912
  13. STALEVO [Concomitant]
     Active Substance: CARBIDOPA\ENTACAPONE\LEVODOPA
     Indication: Product used for unknown indication
     Dates: start: 20230829
  14. MOVICOL [Concomitant]
     Active Substance: POLYETHYLENE GLYCOL 3350\POTASSIUM CHLORIDE\SODIUM BICARBONATE\SODIUM CHLORIDE
     Indication: Product used for unknown indication
     Dates: end: 20231214
  15. HERBALS [Concomitant]
     Active Substance: HERBALS
     Indication: Product used for unknown indication
     Dates: start: 20231221, end: 20240131
  16. AMITIZA [Concomitant]
     Active Substance: LUBIPROSTONE
     Indication: Product used for unknown indication
     Dates: start: 20240903
  17. QUETIAPINE FUMARATE [Concomitant]
     Active Substance: QUETIAPINE FUMARATE
     Indication: Insomnia
     Dosage: TIME INTERVAL: AS NECESSARY
     Dates: start: 20240903

REACTIONS (10)
  - Suicide attempt [Unknown]
  - Vomiting [Recovered/Resolved]
  - Renin increased [Unknown]
  - Nausea [Recovered/Resolved]
  - Gallbladder polyp [Unknown]
  - Hypertensive emergency [Recovered/Resolved]
  - Cholelithiasis [Unknown]
  - Weight decreased [Unknown]
  - Gastric adenoma [Unknown]
  - Depressive symptom [Unknown]

NARRATIVE: CASE EVENT DATE: 20230906
